FAERS Safety Report 5504511-7 (Version None)
Quarter: 2007Q4

REPORT INFORMATION
  Report Type: 
  Country: None (occurrence: None)
  Receive Date: 20071031
  Receipt Date: 20071018
  Transmission Date: 20080405
  Serious: Yes (Other)
  Sender: FDA-Public Use
  Company Number: STI-2007-01733

PATIENT
  Age: 35 Year
  Sex: Female

DRUGS (2)
  1. HYDROQUINONE (UNSPECIFIED) (HYDROQUINONE) (HYDROQUINONE) (CREAM) [Suspect]
     Indication: VITILIGO
     Dosage: ONCE OR TWICE DAILY
  2. GLUCOCORTICOID-BASED PRODUCTS (GLUCOCORTICOIDS) [Suspect]
     Indication: VITILIGO
     Dosage: ONCE OR TWICE DAILY

REACTIONS (6)
  - INFLAMMATION [None]
  - OFF LABEL USE [None]
  - SKIN HYPERPIGMENTATION [None]
  - SKIN HYPOPIGMENTATION [None]
  - SKIN STRIAE [None]
  - SWELLING [None]
